FAERS Safety Report 4554973-7 (Version None)
Quarter: 2004Q4

REPORT INFORMATION
  Report Type: 
  Country: None (occurrence: None)
  Receive Date: 20041222
  Receipt Date: 20040827
  Transmission Date: 20050328
  Serious: Yes (Death)
  Sender: FDA-Public Use
  Company Number: 208452

PATIENT
  Age: 58 Year
  Sex: Male
  Weight: 72.6 kg

DRUGS (5)
  1. AVASTIN [Suspect]
     Indication: COLORECTAL CANCER METASTATIC
     Dosage: 650 MG, INTRAVENOUS
     Route: 042
     Dates: start: 20040421, end: 20040421
  2. FLUOROURACIL [Concomitant]
  3. LEUCOVORIN CALCIUM [Concomitant]
  4. OXALIPLATIN (OXALIPLATIN) [Concomitant]
  5. NORVASC (AMLOPIDINE BESYLATE) [Concomitant]

REACTIONS (2)
  - ATRIOVENTRICULAR BLOCK COMPLETE [None]
  - MYOCARDIAL INFARCTION [None]
